FAERS Safety Report 9506259 (Version 1)
Quarter: 2013Q1

REPORT INFORMATION
  Report Type: Spontaneous
  Country: US (occurrence: None)
  Receive Date: 20130305
  Receipt Date: 20130305
  Transmission Date: 20140127
  Serious: Yes (Other)
  Sender: FDA-Public Use
  Company Number: 163-21880-12050181

PATIENT
  Age: 43 Year
  Sex: Male

DRUGS (1)
  1. REVLIMID [Suspect]
     Indication: PLASMA CELL MYELOMA
     Dosage: 10 MG, DAILY FOR 21 OF 28 DAYS, PO
     Route: 048
     Dates: start: 20120326, end: 201205

REACTIONS (2)
  - Tachycardia [None]
  - Plasma cell myeloma [None]
